FAERS Safety Report 5679302-7 (Version None)
Quarter: 2008Q1

REPORT INFORMATION
  Report Type: 
  Country: None (occurrence: None)
  Receive Date: 20080325
  Receipt Date: 20080313
  Transmission Date: 20080703
  Serious: Yes (Hospitalization, Other)
  Sender: FDA-Public Use
  Company Number: DK-WYE-H02928708

PATIENT
  Sex: Female

DRUGS (12)
  1. PANTOPRAZOLE SODIUM [Suspect]
     Indication: OESOPHAGITIS
     Dates: start: 19980501, end: 19980101
  2. PANTOPRAZOLE SODIUM [Suspect]
     Indication: DYSPEPSIA
  3. NEXIUM [Suspect]
     Indication: DYSPEPSIA
     Route: 065
     Dates: end: 20050518
  4. LIORESAL [Concomitant]
     Route: 065
  5. MARINOL [Concomitant]
     Route: 065
  6. CUCURBITA [Concomitant]
     Dosage: UNKNOWN
     Route: 065
  7. SPASMOLYT [Concomitant]
     Dosage: UNKNOWN
     Route: 065
  8. ALPRAZOLAM [Concomitant]
     Dosage: UNKNOWN
     Route: 065
  9. VITAMINS [Concomitant]
     Dosage: UNKNOWN
     Route: 065
  10. CLOBETASOL PROPIONATE [Concomitant]
     Dosage: UNKNOWN
     Route: 065
  11. HYDROCORTISONE [Concomitant]
     Indication: ADDISON'S DISEASE
     Route: 048
  12. ERCOQUIN [Concomitant]
     Dosage: ^DF^
     Route: 065
     Dates: start: 20050518, end: 20050530

REACTIONS (1)
  - CUTANEOUS LUPUS ERYTHEMATOSUS [None]
